FAERS Safety Report 7131122-2 (Version None)
Quarter: 2010Q4

REPORT INFORMATION
  Report Type: 
  Country: None (occurrence: None)
  Receive Date: 20101201
  Receipt Date: 20101116
  Transmission Date: 20110411
  Serious: Yes (Hospitalization)
  Sender: FDA-Public Use
  Company Number: GXKR2010GB13026

PATIENT
  Age: 77 Year
  Sex: Female

DRUGS (6)
  1. ALENDRONIC ACID (NGX) [Suspect]
     Dosage: 70 MG, QW
     Route: 048
  2. ACETYLSALICYLIC ACID [Concomitant]
  3. BENDROFLUMETHIAZIDE [Concomitant]
     Route: 065
  4. DILTIAZEM [Concomitant]
     Route: 065
  5. SIMVASTATIN [Concomitant]
     Route: 065
  6. SOTALOL HCL [Concomitant]
     Route: 065

REACTIONS (2)
  - FALL [None]
  - FEMUR FRACTURE [None]
